FAERS Safety Report 12668949 (Version 5)
Quarter: 2019Q3

REPORT INFORMATION
  Report Type: Spontaneous
  Country: US (occurrence: US)
  Receive Date: 20160819
  Receipt Date: 20190930
  Transmission Date: 20191004
  Serious: Yes (Other)
  Sender: FDA-Public Use
  Company Number: US-TEVA-680433ACC

PATIENT
  Age: 21 Year
  Sex: Female
  Weight: 83.99 kg

DRUGS (2)
  1. PLAN B ONE-STEP [Suspect]
     Active Substance: LEVONORGESTREL
     Indication: POST COITAL CONTRACEPTION
     Dates: start: 20160705, end: 20160705
  2. PLAN B ONE-STEP [Suspect]
     Active Substance: LEVONORGESTREL
     Dates: start: 20160706, end: 20160706

REACTIONS (6)
  - Nausea [Recovered/Resolved]
  - Pregnancy after post coital contraception [Unknown]
  - Menstruation delayed [Not Recovered/Not Resolved]
  - Maternal exposure during pregnancy [Unknown]
  - Vomiting [Recovered/Resolved]
  - Dysmenorrhoea [Not Recovered/Not Resolved]

NARRATIVE: CASE EVENT DATE: 20160715
